FAERS Safety Report 19403229 (Version 1)
Quarter: 2021Q2

REPORT INFORMATION
  Report Type: Spontaneous
  Country: US (occurrence: US)
  Receive Date: 20210610
  Receipt Date: 20210610
  Transmission Date: 20210717
  Serious: Yes (Other)
  Sender: FDA-Public Use
  Company Number: US-PFIZER INC-2021641491

PATIENT
  Age: 74 Year
  Sex: Male
  Weight: 142.86 kg

DRUGS (1)
  1. BOSULIF [Suspect]
     Active Substance: BOSUTINIB MONOHYDRATE
     Indication: CHRONIC MYELOID LEUKAEMIA
     Dosage: 400 MG, DAILY
     Route: 048
     Dates: start: 20210514

REACTIONS (3)
  - Dyspnoea exertional [Unknown]
  - Hypoxia [Unknown]
  - Arthralgia [Unknown]
